FAERS Safety Report 12099243 (Version 1)
Quarter: 2016Q1

REPORT INFORMATION
  Report Type: Spontaneous
  Country: US (occurrence: None)
  Receive Date: 20160219
  Receipt Date: 20160219
  Transmission Date: 20160526
  Serious: No
  Sender: FDA-Public Use
  Company Number: None

PATIENT
  Age: 49 Year
  Sex: Female

DRUGS (9)
  1. COREG [Concomitant]
     Active Substance: CARVEDILOL
  2. CARVEDILOL. [Concomitant]
     Active Substance: CARVEDILOL
  3. PROTONIX [Concomitant]
     Active Substance: PANTOPRAZOLE SODIUM
  4. PREDNISONE. [Concomitant]
     Active Substance: PREDNISONE
  5. ENBREL [Suspect]
     Active Substance: ETANERCEPT
     Indication: PSORIATIC ARTHROPATHY
     Route: 058
     Dates: start: 20140319
  6. DULOXETINE. [Concomitant]
     Active Substance: DULOXETINE
  7. MEDROL [Concomitant]
     Active Substance: METHYLPREDNISOLONE
  8. MELOXICAM. [Concomitant]
     Active Substance: MELOXICAM
  9. HYDROCHLORT [Concomitant]

REACTIONS (2)
  - Inflammation [None]
  - Pain [None]

NARRATIVE: CASE EVENT DATE: 201602
